FAERS Safety Report 20389060 (Version 2)
Quarter: 2022Q1

REPORT INFORMATION
  Report Type: Spontaneous
  Country: US (occurrence: US)
  Receive Date: 20220128
  Receipt Date: 20220209
  Transmission Date: 20220423
  Serious: Yes (Other)
  Sender: FDA-Public Use
  Company Number: US-009507513-2201USA007994

PATIENT
  Sex: Female
  Weight: 69.388 kg

DRUGS (20)
  1. TEMODAR [Suspect]
     Active Substance: TEMOZOLOMIDE
     Dosage: UNK
     Dates: start: 201901
  2. ZOFRAN [Suspect]
     Active Substance: ONDANSETRON HYDROCHLORIDE
     Dosage: 4 MG (MILLIGRAM), ONCE DAILY
     Route: 048
  3. CAPECITABINE [Suspect]
     Active Substance: CAPECITABINE
     Dosage: UNK
     Dates: start: 201901
  4. AFINITOR [Suspect]
     Active Substance: EVEROLIMUS
     Dosage: 10 MG (MILLIGRAM), ONCE DAILY
     Route: 048
     Dates: start: 201703
  5. LUTATHERA [Suspect]
     Active Substance: LUTETIUM OXODOTREOTIDE LU-177
     Dosage: UNK
  6. NORVASC [Concomitant]
     Active Substance: AMLODIPINE BESYLATE
  7. BENTYL [Concomitant]
     Active Substance: DICYCLOMINE HYDROCHLORIDE
  8. ALLEGRA [LEVOCETIRIZINE DIHYDROCHLORIDE] [Concomitant]
  9. FLONASE [Concomitant]
     Active Substance: FLUTICASONE PROPIONATE
  10. LASIX [Concomitant]
     Active Substance: FUROSEMIDE
  11. VITAMINS [Concomitant]
     Active Substance: VITAMINS
     Route: 048
  12. OMEPRAZOLE [Concomitant]
     Active Substance: OMEPRAZOLE
     Dosage: EC TABLET
  13. COMPAZINE [Concomitant]
     Active Substance: PROCHLORPERAZINE MALEATE
  14. PHENERGAN [Concomitant]
     Active Substance: PROMETHAZINE HYDROCHLORIDE
  15. PRANDIN [Concomitant]
     Active Substance: REPAGLINIDE
  16. TRANSDERM SCOP [Concomitant]
     Active Substance: SCOPOLAMINE
     Dosage: 1 MG OVER 3 DAYS PATCH 3 DAY
  17. SENNA AND DOCUSATE SODIUM [Concomitant]
     Active Substance: DOCUSATE SODIUM\SENNOSIDES
     Dosage: 8.6-50 MG
  18. SOMATULINE DEPOT [Concomitant]
     Active Substance: LANREOTIDE ACETATE
     Dosage: SYRINGE INJECTION
  19. LANREOTIDE [Concomitant]
     Active Substance: LANREOTIDE
  20. SODIUM CHLORIDE [Concomitant]
     Active Substance: SODIUM CHLORIDE

REACTIONS (17)
  - Malignant neoplasm progression [Unknown]
  - Metastases to liver [Unknown]
  - Metastases to ovary [Unknown]
  - Gallbladder enlargement [Unknown]
  - Obesity [Unknown]
  - Asthma [Unknown]
  - Cardiac disorder [Unknown]
  - Renal cyst [Unknown]
  - Blood creatinine decreased [Unknown]
  - Cholelithiasis [Unknown]
  - Bladder dilatation [Unknown]
  - Ovarian mass [Unknown]
  - Abnormal loss of weight [Unknown]
  - Blood potassium decreased [Unknown]
  - Haemoglobin decreased [Unknown]
  - Blood glucose increased [Unknown]
  - Nausea [Unknown]

NARRATIVE: CASE EVENT DATE: 20190101
